FAERS Safety Report 4437919-1 (Version None)
Quarter: 2004Q3

REPORT INFORMATION
  Report Type: 
  Country: None (occurrence: None)
  Receive Date: 20040827
  Receipt Date: 20040813
  Transmission Date: 20050211
  Serious: Yes (Life-Threatening, Hospitalization, Other)
  Sender: FDA-Public Use
  Company Number: GBR-2004-0001218

PATIENT
  Age: 89 Year
  Sex: Female

DRUGS (2)
  1. MORPHINE SULFATE [Suspect]
     Dosage: 1/4 TAB EVERY 4 HOURS, ORAL
     Route: 048
     Dates: start: 20030117, end: 20030120
  2. MORPHINE SULFATE [Suspect]
     Dosage: 60 MG, DAILY, ORAL
     Route: 048
     Dates: end: 20030120

REACTIONS (7)
  - BLOOD CREATININE INCREASED [None]
  - BLOOD PH DECREASED [None]
  - DEPRESSED LEVEL OF CONSCIOUSNESS [None]
  - GENERAL PHYSICAL HEALTH DETERIORATION [None]
  - OXYGEN SATURATION DECREASED [None]
  - RESPIRATORY ARREST [None]
  - SUBILEUS [None]
